FAERS Safety Report 16801587 (Version 3)
Quarter: 2019Q4

REPORT INFORMATION
  Report Type: Spontaneous
  Country: DE (occurrence: DE)
  Receive Date: 20190912
  Receipt Date: 20191119
  Transmission Date: 20200122
  Serious: Yes (Other)
  Sender: FDA-Public Use
  Company Number: DE-MYLANLABS-2019M1084768

PATIENT
  Age: 70 Year
  Sex: Male
  Weight: 90 kg

DRUGS (18)
  1. PRAVASTATIN. [Concomitant]
     Active Substance: PRAVASTATIN
     Indication: FAT TISSUE INCREASED
     Dosage: UNK, QD (1-0-0)
     Route: 048
     Dates: start: 2013
  2. AMLODIPIN                          /00972401/ [Concomitant]
     Active Substance: AMLODIPINE BESYLATE
     Indication: BLOOD PRESSURE INCREASED
     Dosage: 5 GRAM, QD (1-0-0)
     Dates: start: 2019
  3. CIPROFLOXACIN. [Concomitant]
     Active Substance: CIPROFLOXACIN
     Dosage: 250 GRAM
     Dates: start: 2016
  4. METOPROLOL. [Concomitant]
     Active Substance: METOPROLOL
     Indication: BLOOD PRESSURE INCREASED
     Dosage: AT A DOSE OF 190, QD (1-0-0)
     Dates: start: 2019
  5. CAPTOPRIL. [Concomitant]
     Active Substance: CAPTOPRIL
     Dosage: UNK UNK, QD (1-0-0)
     Route: 048
     Dates: start: 2019
  6. IBEROGAST [Concomitant]
     Active Substance: HERBALS
     Dosage: UNK
     Dates: start: 2016
  7. CLOPIDOGREL [Concomitant]
     Active Substance: CLOPIDOGREL BISULFATE
     Indication: STENT PLACEMENT
     Dosage: AT A DOSE OF 75, QD (1-0-0)
     Dates: start: 2019
  8. NOVAMINSULFON [Concomitant]
     Active Substance: METAMIZOLE
     Dosage: UNK
     Dates: start: 2016
  9. VALSARTAN DURA [Suspect]
     Active Substance: VALSARTAN
     Indication: HYPERTENSION
     Dosage: 320/25 MILLIGRAM, AM (ONCE DAILY IN THE MORNING)
     Route: 048
     Dates: start: 2012, end: 2018
  10. AMOXICILLIN. [Concomitant]
     Active Substance: AMOXICILLIN
     Dosage: 100 GRAM
     Dates: start: 2017
  11. PREDNISONE. [Concomitant]
     Active Substance: PREDNISONE
     Dosage: UNK
     Dates: start: 2015
  12. DICLOFENAC [Concomitant]
     Active Substance: DICLOFENAC
     Dosage: UNK
     Dates: start: 2015
  13. HCT 25 [Concomitant]
     Active Substance: HYDROCHLOROTHIAZIDE
     Indication: BLOOD PRESSURE INCREASED
     Dosage: AT A DOSE OF 25, QD (1-0-0)
     Dates: start: 2019
  14. JANUMET [Concomitant]
     Active Substance: METFORMIN HYDROCHLORIDE\SITAGLIPTIN PHOSPHATE
     Indication: DIABETES MELLITUS
     Dosage: UNK, BID (1-0-1), 50/1000 STRENGTH
     Dates: start: 2018
  15. DOLO-DOBENDAN [Concomitant]
     Active Substance: BENZOCAINE\CETYLPYRIDINIUM CHLORIDE
     Dosage: UNK
     Dates: start: 2016
  16. ASPIRIN. [Concomitant]
     Active Substance: ASPIRIN
     Indication: CORONARY ARTERY DISEASE
     Dosage: AT A DOSE OF 100, QD (1-0-0)
     Dates: start: 2019
  17. CODIOVAN [Concomitant]
     Active Substance: HYDROCHLOROTHIAZIDE\VALSARTAN
     Dosage: UNK
     Dates: start: 2013
  18. MOXONIDIN [Concomitant]
     Active Substance: MOXONIDINE
     Indication: BLOOD PRESSURE INCREASED
     Dosage: AT A DOSE OF 0.2, QD (1-0-0)
     Dates: start: 2019

REACTIONS (1)
  - Prostate cancer [Unknown]

NARRATIVE: CASE EVENT DATE: 2016
